FAERS Safety Report 20635583 (Version 1)
Quarter: 2022Q1

REPORT INFORMATION
  Report Type: Spontaneous
  Country: NZ (occurrence: NZ)
  Receive Date: 20220325
  Receipt Date: 20220325
  Transmission Date: 20220424
  Serious: No
  Sender: FDA-Public Use
  Company Number: None

PATIENT
  Age: 71 Year
  Sex: Female

DRUGS (2)
  1. NITROFURANTOIN MONOHYDRATE MACROCRYSTALS [Suspect]
     Active Substance: NITROFURANTOIN\NITROFURANTOIN MONOHYDRATE
     Indication: Product used for unknown indication
     Route: 048
  2. FLUAD QUAD (AUSTRALIA) [Suspect]
     Active Substance: INFLUENZA A VIRUS A/HONG KONG/2671/2019 IVR-208 (H3N2) ANTIGEN (FORMALDEHYDE INACTIVATED)\ INFLUENZA
     Indication: Product used for unknown indication

REACTIONS (4)
  - Musculoskeletal pain [Unknown]
  - Myalgia [Unknown]
  - Petechiae [Unknown]
  - Fatigue [Unknown]
